FAERS Safety Report 5956206-3 (Version None)
Quarter: 2008Q4

REPORT INFORMATION
  Report Type: 
  Country: None (occurrence: None)
  Receive Date: 20081112
  Receipt Date: 20081104
  Transmission Date: 20090506
  Serious: Yes (Hospitalization)
  Sender: FDA-Public Use
  Company Number: CAR-2008-046

PATIENT
  Age: 77 Year
  Sex: Female

DRUGS (11)
  1. CARAFATE [Suspect]
     Indication: GASTROOESOPHAGEAL REFLUX DISEASE
     Dosage: 2 TSP TID ORAL
     Route: 048
  2. CORDARONE [Concomitant]
  3. TOPROL-XL [Concomitant]
  4. ECOPRIN (ACETYLSALICYLIC ACID) [Concomitant]
  5. SYNTHROID [Concomitant]
  6. ESTRATES (ESTERIFIED ESTROGENS AND METHYLTESTOSTERONE) [Concomitant]
  7. SYMBYAX [Concomitant]
  8. ZANTAC [Concomitant]
  9. MACRODANTIN [Concomitant]
  10. MIRALAX POWDER (POLYETHYLENE GLYCOL) [Concomitant]
  11. GAS X (SIMETHICONE) [Concomitant]

REACTIONS (6)
  - ABDOMINAL PAIN UPPER [None]
  - CHEST PAIN [None]
  - DYSGEUSIA [None]
  - MALAISE [None]
  - NAUSEA [None]
  - PRODUCT QUALITY ISSUE [None]
